FAERS Safety Report 13984022 (Version 2)
Quarter: 2017Q3

REPORT INFORMATION
  Report Type: Spontaneous
  Country: US (occurrence: US)
  Receive Date: 20170918
  Receipt Date: 20170919
  Transmission Date: 20171128
  Serious: Yes (Other)
  Sender: FDA-Public Use
  Company Number: US-PFIZER INC-2017401380

PATIENT
  Sex: Male
  Weight: 78.46 kg

DRUGS (6)
  1. NEURONTIN [Suspect]
     Active Substance: GABAPENTIN
     Indication: AFFECTIVE DISORDER
     Dosage: 300 MG, 3X/DAY
     Route: 048
     Dates: end: 20170911
  2. LIPITOR [Concomitant]
     Active Substance: ATORVASTATIN CALCIUM
     Indication: BLOOD CHOLESTEROL INCREASED
     Dosage: 10 MG, UNK
  3. NEURONTIN [Suspect]
     Active Substance: GABAPENTIN
     Dosage: 300 MG, 3X/DAY
     Route: 048
     Dates: start: 20170913
  4. ATIVAN [Concomitant]
     Active Substance: LORAZEPAM
     Indication: ANXIETY DISORDER
     Dosage: 1MG LITTLE PILL THREE TIMES A DAY BY MOUTH IF HE NEEDS IT
     Route: 048
  5. LIPITOR [Concomitant]
     Active Substance: ATORVASTATIN CALCIUM
     Dosage: 20MG TABLET ONCE BY MOUTH DAILY
     Route: 048
  6. PRISTIQ EXTENDED-RELEASE [Concomitant]
     Active Substance: DESVENLAFAXINE SUCCINATE
     Indication: ANTIDEPRESSANT THERAPY
     Dosage: 50MG TABLET ONCE DAY BY MOUTH
     Route: 048

REACTIONS (8)
  - Bronchitis [Unknown]
  - Autoimmune disorder [Unknown]
  - Malaise [Unknown]
  - Influenza [Unknown]
  - Product use in unapproved indication [Unknown]
  - Feeling abnormal [Unknown]
  - Nervous system disorder [Unknown]
  - Sinusitis [Unknown]
